FAERS Safety Report 20090835 (Version 2)
Quarter: 2021Q4

REPORT INFORMATION
  Report Type: Spontaneous
  Country: IT (occurrence: IT)
  Receive Date: 20211119
  Receipt Date: 20211224
  Transmission Date: 20220303
  Serious: Yes (Other)
  Sender: FDA-Public Use
  Company Number: IT-VELOXIS PHARMACEUTICALS-2021VELIT-000829

PATIENT
  Sex: Female

DRUGS (5)
  1. TACROLIMUS [Suspect]
     Active Substance: TACROLIMUS
     Indication: Immunosuppressant drug therapy
     Dosage: UNK
  2. ACETYLCYSTEINE [Concomitant]
     Active Substance: ACETYLCYSTEINE
     Indication: Encephalopathy
     Dosage: 100 MILLIGRAM/KILOGRAM, QD
  3. METRONIDAZOLE [Concomitant]
     Active Substance: METRONIDAZOLE
     Indication: Diarrhoea
     Dosage: 30 MILLIGRAM/KILOGRAM, QD
  4. CARNITINE [Concomitant]
     Active Substance: CARNITINE
     Indication: Encephalopathy
     Dosage: 100 MILLIGRAM/KILOGRAM, QD
  5. CARNITINE [Concomitant]
     Active Substance: CARNITINE
     Dosage: 30 MILLIGRAM/KILOGRAM, QD

REACTIONS (2)
  - Metabolic acidosis [Unknown]
  - Product use issue [Unknown]
